FAERS Safety Report 14028299 (Version 1)
Quarter: 2017Q4

REPORT INFORMATION
  Report Type: Spontaneous
  Country: US (occurrence: US)
  Receive Date: 20171001
  Receipt Date: 20171001
  Transmission Date: 20180321
  Serious: Yes (Life-Threatening, Hospitalization, Disabling, Other)
  Sender: FDA-Public Use
  Company Number: None

PATIENT
  Age: 32 Year
  Sex: Male
  Weight: 65.25 kg

DRUGS (2)
  1. MEFLOQUINE [Suspect]
     Active Substance: MEFLOQUINE
     Indication: MALARIA PROPHYLAXIS
     Dosage: ?          QUANTITY:1 TABLET(S);OTHER FREQUENCY:WEEKLY;?
     Route: 048
     Dates: start: 20150909, end: 20150909
  2. MULTI VITAMIN [Concomitant]
     Active Substance: VITAMINS

REACTIONS (15)
  - Mental impairment [None]
  - Hyperhidrosis [None]
  - Panic reaction [None]
  - Confusional state [None]
  - Anxiety [None]
  - Brain injury [None]
  - Memory impairment [None]
  - Seizure [None]
  - Asthenia [None]
  - Sensory disturbance [None]
  - Apathy [None]
  - Impaired work ability [None]
  - Depression [None]
  - Syncope [None]
  - Hypotension [None]

NARRATIVE: CASE EVENT DATE: 20150915
